FAERS Safety Report 5179450-4 (Version None)
Quarter: 2006Q4

REPORT INFORMATION
  Report Type: 
  Country: None (occurrence: None)
  Receive Date: 20061211
  Receipt Date: 20061201
  Transmission Date: 20070319
  Serious: Yes (Hospitalization)
  Sender: FDA-Public Use
  Company Number: 06H-167-0311408-00

PATIENT
  Age: 14 Year
  Sex: Male
  Weight: 41 kg

DRUGS (10)
  1. PROPOFOL [Suspect]
     Indication: ANAESTHESIA
     Dates: start: 20061108, end: 20061108
  2. SEVOFLURANE [Suspect]
     Indication: ANAESTHESIA
     Dates: start: 20061108, end: 20061108
  3. CEFUROXIME [Concomitant]
  4. DEXAMETHASONE [Concomitant]
  5. DICLOFENAC SODIUM [Concomitant]
  6. MIDAZOLAM HYDROCHLORIDE [Concomitant]
  7. MORPHINE [Concomitant]
  8. OMEPRAZOLE [Concomitant]
  9. ACETAMINOPHEN [Concomitant]
  10. RANITIDINE [Concomitant]

REACTIONS (1)
  - HEPATOTOXICITY [None]
